FAERS Safety Report 23566188 (Version 1)
Quarter: 2024Q1

REPORT INFORMATION
  Report Type: Spontaneous
  Country: NL (occurrence: NL)
  Receive Date: 20240226
  Receipt Date: 20240226
  Transmission Date: 20240409
  Serious: Yes (Hospitalization)
  Sender: FDA-Public Use
  Company Number: NL-Merck Healthcare KGaA-2024009079

PATIENT
  Age: 77 Year
  Sex: Female

DRUGS (1)
  1. TEPOTINIB [Suspect]
     Active Substance: TEPOTINIB
     Indication: Non-small cell lung cancer stage IV
     Route: 048
     Dates: start: 20230109, end: 20240215

REACTIONS (7)
  - Diverticulitis [Not Recovered/Not Resolved]
  - Large intestine perforation [Not Recovered/Not Resolved]
  - Gastric perforation [Not Recovered/Not Resolved]
  - Sepsis [Not Recovered/Not Resolved]
  - Abdominal pain [Not Recovered/Not Resolved]
  - Disease progression [Unknown]
  - Chest pain [Unknown]

NARRATIVE: CASE EVENT DATE: 20240215
